FAERS Safety Report 9678186 (Version 1)
Quarter: 2013Q4

REPORT INFORMATION
  Report Type: Report from Study
  Country: NL (occurrence: NL)
  Receive Date: 20131108
  Receipt Date: 20131108
  Transmission Date: 20140711
  Serious: Yes (Hospitalization)
  Sender: FDA-Public Use
  Company Number: NL-JNJFOC-20131019474

PATIENT
  Age: 6 Decade
  Sex: Male

DRUGS (13)
  1. ZYTIGA [Suspect]
     Indication: PROSTATE CANCER
     Route: 048
     Dates: start: 20130215, end: 20130524
  2. OXYCONTIN [Concomitant]
  3. OXYNORM [Concomitant]
     Dosage: 5 TO 6 PER DAY
  4. DICLOFENAC [Concomitant]
  5. OMEPRAZOLE [Concomitant]
  6. PREDNISOLONE [Concomitant]
  7. PARACETAMOL [Concomitant]
  8. TOVIAZ [Concomitant]
  9. CALCIUM W/ VITAMIN D [Concomitant]
     Dosage: 500/400 IE DD
  10. MOLAXOLE [Concomitant]
  11. CASODEX [Concomitant]
     Dates: start: 2010
  12. DOCETAXEL [Concomitant]
     Dates: start: 2012
  13. CABAZITAXEL [Concomitant]
     Dates: start: 2012

REACTIONS (1)
  - Pyramidal tract syndrome [Unknown]
